FAERS Safety Report 5937361-8 (Version None)
Quarter: 2008Q4

REPORT INFORMATION
  Report Type: 
  Country: None (occurrence: None)
  Receive Date: 20081031
  Receipt Date: 20081023
  Transmission Date: 20090506
  Serious: Yes (Other)
  Sender: FDA-Public Use
  Company Number: DE-WYE-H06591508

PATIENT
  Age: 70 Year
  Sex: Male

DRUGS (2)
  1. AMIODARONE HCL [Suspect]
     Indication: ARRHYTHMIA
     Route: 048
     Dates: start: 20080630, end: 20080823
  2. MARCUMAR [Concomitant]
     Indication: ARRHYTHMIA
     Dosage: DOSE UNKNOWN
     Route: 048
     Dates: start: 20080614, end: 20080823

REACTIONS (1)
  - HAEMOLYSIS [None]
